FAERS Safety Report 23079690 (Version 1)
Quarter: 2023Q4

REPORT INFORMATION
  Report Type: Report from Study
  Country: US (occurrence: US)
  Receive Date: 20231018
  Receipt Date: 20231018
  Transmission Date: 20240110
  Serious: Yes (Other)
  Sender: FDA-Public Use
  Company Number: US-UCBSA-2023049291

PATIENT

DRUGS (4)
  1. MIDAZOLAM [Suspect]
     Active Substance: MIDAZOLAM
     Indication: Sedation
     Dosage: 0.1 MILLIGRAM/KILOGRAM IV BOLUS 2 HRS BEFORE PROCEDURE
     Route: 040
  2. MIDAZOLAM [Suspect]
     Active Substance: MIDAZOLAM
     Indication: Off label use
     Dosage: 0.06?0.12 MG/KG/HR CONTINUOUS INFUSION
  3. FENTANYL [Suspect]
     Active Substance: FENTANYL
     Indication: Sedation
     Dosage: 2 MICROGRAM/KILOGRAM IV BOLUS 2 HRS BEFORE PROCEDURE
     Route: 040
  4. FENTANYL [Suspect]
     Active Substance: FENTANYL
     Dosage: 2 MG/KG/HR CONTINUOUS INFUSION

REACTIONS (4)
  - Bradycardia [Unknown]
  - Apnoea [Unknown]
  - Hypotension [Unknown]
  - Off label use [Unknown]
